FAERS Safety Report 16200095 (Version 2)
Quarter: 2019Q2

REPORT INFORMATION
  Report Type: Other
  Country: GB (occurrence: GB)
  Receive Date: 20190415
  Receipt Date: 20190516
  Transmission Date: 20190711
  Serious: Yes (Hospitalization, Other)
  Sender: FDA-Public Use
  Company Number: GB-CELLTRION INC.-2019GB019341

PATIENT

DRUGS (43)
  1. ADCAL D3 [Concomitant]
     Active Substance: CALCIUM CARBONATE\CHOLECALCIFEROL
     Dosage: 4 DF, 1DAILY
     Route: 048
     Dates: start: 20140127
  2. ZEROBASE [Concomitant]
     Active Substance: MINERAL OIL\PARAFFIN
     Indication: DRY SKIN
     Dosage: UNK
     Route: 061
     Dates: start: 20180406
  3. TERBUTALINE [Concomitant]
     Active Substance: TERBUTALINE
     Dosage: 1 UG, 1 DAY
     Dates: start: 20030108
  4. PENTASA [Concomitant]
     Active Substance: MESALAMINE
     Indication: CROHN^S DISEASE
     Dosage: 4 G, DAILY
     Route: 048
     Dates: start: 20180730
  5. CHIROCAINE [Concomitant]
     Active Substance: LEVOBUPIVACAINE HYDROCHLORIDE
     Dosage: UNK
  6. OMEPRAZOLE. [Concomitant]
     Active Substance: OMEPRAZOLE
     Dosage: 20 MG, DAILY
     Route: 048
     Dates: start: 20091014
  7. TRANEXAMIC ACID. [Concomitant]
     Active Substance: TRANEXAMIC ACID
     Dosage: UNK
  8. DOXAZOSIN [Concomitant]
     Active Substance: DOXAZOSIN\DOXAZOSIN MESYLATE
     Dosage: 2 MG
     Route: 048
     Dates: start: 20040816
  9. PENTASA [Concomitant]
     Active Substance: MESALAMINE
     Dosage: 1 SACHET, DAILY
     Route: 048
     Dates: start: 20131217, end: 20180730
  10. CHLORHEXIDINE [Concomitant]
     Active Substance: CHLORHEXIDINE
     Dosage: 10 ML
     Route: 065
     Dates: start: 20181019
  11. PIRITON [Concomitant]
     Active Substance: CHLORPHENIRAMINE MALEATE
     Dosage: 4 MG
     Route: 048
     Dates: start: 20180125
  12. CYCLIZINE [Concomitant]
     Active Substance: CYCLIZINE
     Dosage: 50 MG
     Route: 048
  13. FOLIC ACID. [Concomitant]
     Active Substance: FOLIC ACID
     Dosage: 5 MG, DAILY
     Route: 048
     Dates: start: 20030207
  14. FEMARA [Suspect]
     Active Substance: LETROZOLE
     Indication: BREAST CANCER
     Dosage: 2.5 MG, DAILY
     Route: 048
     Dates: start: 20180119, end: 20180126
  15. PARACETAMOL [Concomitant]
     Active Substance: ACETAMINOPHEN
     Indication: OEDEMA
     Dosage: 1 G
     Route: 048
     Dates: start: 20180916, end: 20181002
  16. FLUCONAZOLE. [Concomitant]
     Active Substance: FLUCONAZOLE
     Dosage: 100 MG
     Route: 048
     Dates: start: 20180125
  17. TEICOPLANIN [Concomitant]
     Active Substance: TEICOPLANIN
     Dosage: 400 MG
     Route: 065
     Dates: start: 20181220, end: 20181224
  18. TAXOL [Suspect]
     Active Substance: PACLITAXEL
     Indication: BREAST CANCER
     Dosage: 156 MG, 1/WEEK
     Route: 042
     Dates: start: 20180202, end: 20180518
  19. HYDROXOCOBALAMIN [Concomitant]
     Active Substance: HYDROXOCOBALAMIN
     Dosage: 1 MG/1 ML
     Route: 030
     Dates: start: 20020115
  20. CETRIZINE [Concomitant]
     Active Substance: CETIRIZINE HYDROCHLORIDE
     Dosage: 10 UG
     Route: 048
     Dates: start: 20080430
  21. SANDO K [Concomitant]
     Dosage: UNK
  22. RANITIDINE (INTRAVENOUS) [Concomitant]
     Dosage: 50 MG, TAKEN PRIOR TO STUDY
     Route: 042
     Dates: start: 20180202
  23. QUININE SULPHATE [Concomitant]
     Active Substance: QUININE SULFATE
     Dosage: 200 MG
     Route: 048
     Dates: start: 20040219
  24. BENDROFLUMETHIAZIDE [Concomitant]
     Active Substance: BENDROFLUMETHIAZIDE
     Dosage: 2.5 MG, DAILY
     Route: 048
     Dates: start: 20030114
  25. BENZYDAMINE [Concomitant]
     Active Substance: BENZYDAMINE
     Dosage: 5 ML, MOUTHWASH
     Route: 065
     Dates: start: 20180414
  26. CHLORPHENAMINE [Concomitant]
     Active Substance: CHLORPHENIRAMINE MALEATE
     Dosage: 10 MG, TAKEN PRIOR TO STUDY
     Route: 042
     Dates: start: 20180202
  27. AQUACEL [Concomitant]
     Active Substance: CARBOXYMETHYLCELLULOSE SODIUM
     Dosage: UNK
  28. METOCLOPRAMIDE. [Concomitant]
     Active Substance: METOCLOPRAMIDE
     Dosage: 10 MG, TAKEN PRIOR TO STUDY
     Route: 048
     Dates: start: 20180202
  29. PARACETAMOL [Concomitant]
     Active Substance: ACETAMINOPHEN
     Dosage: 1 G
     Route: 048
     Dates: start: 20180225, end: 20180301
  30. VANCOMYCIN [Concomitant]
     Active Substance: VANCOMYCIN
     Dosage: 2000 MG
     Route: 042
     Dates: start: 20181119, end: 20181119
  31. ZOLEDRONIC ACID [Concomitant]
     Active Substance: ZOLEDRONIC ACID
     Indication: METASTASES TO BONE
     Dosage: UNK
     Route: 065
     Dates: start: 20181019
  32. FEMARA [Suspect]
     Active Substance: LETROZOLE
     Dosage: 2.5 MG, DAILY
     Route: 048
     Dates: start: 20180525, end: 20181011
  33. METRONIDAZOLE. [Concomitant]
     Active Substance: METRONIDAZOLE
     Dosage: 400 MG
     Route: 065
     Dates: start: 20181122, end: 20181123
  34. METRONIDAZOLE. [Concomitant]
     Active Substance: METRONIDAZOLE
     Dosage: 1500 MG, DAILY
     Route: 042
     Dates: start: 20181119, end: 20181124
  35. CLOTRIMAZOLE. [Concomitant]
     Active Substance: CLOTRIMAZOLE
     Dosage: UNK
     Route: 061
     Dates: start: 20180125
  36. DOXYCYCLINE. [Concomitant]
     Active Substance: DOXYCYCLINE
     Dosage: 200 MG
     Route: 048
     Dates: start: 20181113, end: 20181113
  37. COCODAMOL [Concomitant]
     Active Substance: ACETAMINOPHEN\CODEINE PHOSPHATE
     Dosage: 1 DF
     Route: 065
     Dates: start: 20180302
  38. TRASTUZUMAB (UNKNOWN) [Suspect]
     Active Substance: TRASTUZUMAB
     Indication: BREAST CANCER
     Dosage: 600 MG, UNK
     Route: 058
     Dates: start: 20180202, end: 20180827
  39. TRASTUZUMAB EMTANSINE [Suspect]
     Active Substance: ADO-TRASTUZUMAB EMTANSINE
     Indication: BREAST CANCER
     Dosage: 420 MG, EVERY 3 WEEKS
     Route: 042
     Dates: start: 20181019
  40. COCODAMOL [Concomitant]
     Active Substance: ACETAMINOPHEN\CODEINE PHOSPHATE
     Dosage: 1 DF (30/500 MG FORM STRENGTH)
     Route: 048
     Dates: start: 20030104, end: 20180225
  41. COLECALCIFEROL [Concomitant]
     Active Substance: CHOLECALCIFEROL
     Dosage: 4 DF. DAILY
     Route: 048
     Dates: start: 20180920
  42. ONDANSETRON [Concomitant]
     Active Substance: ONDANSETRON
     Dosage: UNK
  43. DUODERM [UNITED KINGDOM] [Concomitant]
     Dosage: UNK

REACTIONS (10)
  - Vomiting [Recovered/Resolved]
  - Product use issue [Unknown]
  - Pain in extremity [Unknown]
  - Mucosal inflammation [Recovered/Resolved]
  - C-reactive protein increased [Recovered/Resolved]
  - Disease progression [Unknown]
  - Arthralgia [Not Recovered/Not Resolved]
  - Wound [Recovered/Resolved]
  - Diarrhoea [Recovered/Resolved]
  - Bone pain [Recovered/Resolved]

NARRATIVE: CASE EVENT DATE: 20180916
